FAERS Safety Report 6105623-X (Version None)
Quarter: 2009Q1

REPORT INFORMATION
  Report Type: 
  Country: None (occurrence: None)
  Receive Date: 20090227
  Receipt Date: 20080819
  Transmission Date: 20090719
  Serious: Yes (Hospitalization, Other)
  Sender: FDA-Public Use
  Company Number: RB-3477-2008

PATIENT
  Sex: Male

DRUGS (3)
  1. SUBUTEX [Suspect]
     Indication: DRUG ABUSE
     Dosage: 8 MG MG VARYING DOSES TRANSPLACENTAL, 12 MG TRANSPLACENTAL, 16 MG TRANSPLACENTAL
     Route: 064
     Dates: start: 20080114, end: 20080121
  2. SUBUTEX [Suspect]
     Indication: DRUG ABUSE
     Dosage: 8 MG MG VARYING DOSES TRANSPLACENTAL, 12 MG TRANSPLACENTAL, 16 MG TRANSPLACENTAL
     Route: 064
     Dates: start: 20080122, end: 20080413
  3. SUBUTEX [Suspect]
     Indication: DRUG ABUSE
     Dosage: 8 MG MG VARYING DOSES TRANSPLACENTAL, 12 MG TRANSPLACENTAL, 16 MG TRANSPLACENTAL
     Route: 064
     Dates: start: 20080414, end: 20080807

REACTIONS (2)
  - DRUG EXPOSURE DURING PREGNANCY [None]
  - DRUG WITHDRAWAL SYNDROME NEONATAL [None]
